FAERS Safety Report 24756765 (Version 1)
Quarter: 2024Q4

REPORT INFORMATION
  Report Type: Spontaneous
  Country: US (occurrence: US)
  Receive Date: 20241220
  Receipt Date: 20241220
  Transmission Date: 20250114
  Serious: Yes (Other)
  Sender: SERVIER
  Company Number: US-SERVIER-S24014779

PATIENT

DRUGS (1)
  1. ASPARLAS [Suspect]
     Active Substance: CALASPARGASE PEGOL-MKNL
     Indication: T-cell type acute leukaemia
     Dosage: UNK
     Route: 042

REACTIONS (3)
  - Cystitis haemorrhagic [Recovered/Resolved]
  - Coagulopathy [Recovered/Resolved]
  - Drug level increased [Recovered/Resolved]
